FAERS Safety Report 13275603 (Version 1)
Quarter: 2017Q1

REPORT INFORMATION
  Report Type: Report from Study
  Country: IT (occurrence: IT)
  Receive Date: 20170228
  Receipt Date: 20170228
  Transmission Date: 20170428
  Serious: Yes (Hospitalization)
  Sender: FDA-Public Use
  Company Number: IT-ACCORD-048571

PATIENT
  Age: 54 Year
  Sex: Male

DRUGS (1)
  1. AMITRIPTYLINE [Suspect]
     Active Substance: AMITRIPTYLINE
     Indication: PRODUCT USED FOR UNKNOWN INDICATION
     Dosage: NONTHERAPEUTIC DOSAGE OF AMITRIPTYLINE

REACTIONS (2)
  - Coma [Unknown]
  - Self-medication [Unknown]
